FAERS Safety Report 7430681-X (Version None)
Quarter: 2011Q2

REPORT INFORMATION
  Report Type: 
  Country: None (occurrence: None)
  Receive Date: 20110421
  Receipt Date: 20110413
  Transmission Date: 20111010
  Serious: Yes (Other)
  Sender: FDA-Public Use
  Company Number: US-SANOFI-AVENTIS-2011SA023991

PATIENT
  Age: 85 Year
  Sex: Female

DRUGS (8)
  1. RANITIDINE [Concomitant]
  2. CALCIUM [Concomitant]
  3. DIGOXIN [Concomitant]
  4. PLAVIX [Suspect]
     Route: 048
     Dates: start: 20110101
  5. PROCARDIA [Concomitant]
     Dates: start: 19860101
  6. PLAVIX [Suspect]
     Route: 048
     Dates: start: 20100101, end: 20110101
  7. PLAVIX [Suspect]
     Indication: TRANSIENT ISCHAEMIC ATTACK
     Route: 048
     Dates: start: 20100101, end: 20110101
  8. PLAVIX [Suspect]
     Route: 048
     Dates: start: 20110101

REACTIONS (3)
  - OFF LABEL USE [None]
  - ARTHROPATHY [None]
  - ATRIAL FIBRILLATION [None]
